FAERS Safety Report 5702231-7 (Version None)
Quarter: 2008Q2

REPORT INFORMATION
  Report Type: 
  Country: None (occurrence: None)
  Receive Date: 20080411
  Receipt Date: 20080211
  Transmission Date: 20081010
  Serious: No
  Sender: FDA-Public Use
  Company Number: US-ABBOTT-08P-163-0438045-00

PATIENT
  Sex: Female

DRUGS (2)
  1. DEPAKOTE [Suspect]
     Indication: BIPOLAR I DISORDER
     Route: 048
  2. UNKNOWN ANTIDEPRESSANT [Concomitant]
     Indication: DEPRESSION
     Route: 048

REACTIONS (1)
  - SOMNOLENCE [None]
